FAERS Safety Report 10634483 (Version 2)
Quarter: 2015Q1

REPORT INFORMATION
  Report Type: Spontaneous
  Country: US (occurrence: US)
  Receive Date: 20141205
  Receipt Date: 20150316
  Transmission Date: 20150720
  Serious: No
  Sender: FDA-Public Use
  Company Number: US-ASTELLAS-2014US017266

PATIENT
  Sex: Male

DRUGS (3)
  1. XTANDI [Suspect]
     Active Substance: ENZALUTAMIDE
     Dosage: UNK, UNKNOWN FREQ.
     Route: 065
     Dates: start: 20141030
  2. XTANDI [Suspect]
     Active Substance: ENZALUTAMIDE
     Route: 065
  3. XTANDI [Suspect]
     Active Substance: ENZALUTAMIDE
     Indication: PROSTATE CANCER METASTATIC
     Dosage: 4 CAPSULES EVERY NIGHT
     Route: 065

REACTIONS (5)
  - Vomiting [Not Recovered/Not Resolved]
  - Confusional state [Recovered/Resolved]
  - Underdose [Unknown]
  - Nausea [Not Recovered/Not Resolved]
  - Herpes zoster [Unknown]
